FAERS Safety Report 22780182 (Version 2)
Quarter: 2023Q4

REPORT INFORMATION
  Report Type: Report from Study
  Country: US (occurrence: US)
  Receive Date: 20230803
  Receipt Date: 20231004
  Transmission Date: 20240110
  Serious: Yes (Other)
  Sender: FDA-Public Use
  Company Number: US-ABBVIE-5351572

PATIENT
  Sex: Female

DRUGS (1)
  1. SKYRIZI [Suspect]
     Active Substance: RISANKIZUMAB-RZAA
     Indication: Psoriasis
     Route: 058

REACTIONS (8)
  - Back pain [Unknown]
  - Fatigue [Unknown]
  - Bedridden [Unknown]
  - Pigmentation disorder [Unknown]
  - Intervertebral disc protrusion [Unknown]
  - Pain [Recovering/Resolving]
  - Spinal synovial cyst [Unknown]
  - Sciatica [Unknown]
